FAERS Safety Report 9151979 (Version 1)
Quarter: 2013Q1

REPORT INFORMATION
  Report Type: Spontaneous
  Country: US (occurrence: US)
  Receive Date: 20130308
  Receipt Date: 20130308
  Transmission Date: 20140127
  Serious: No
  Sender: FDA-Public Use
  Company Number: US-ENDO PHARMACEUTICALS INC.-OPCR20130031

PATIENT
  Age: 51 Year
  Sex: Female
  Weight: 90.8 kg

DRUGS (1)
  1. OPANA ER [Suspect]
     Indication: PAIN
     Dosage: 1 TABLET
     Route: 048
     Dates: start: 20130108

REACTIONS (2)
  - Muscle tightness [Recovered/Resolved]
  - Headache [Recovered/Resolved]
